FAERS Safety Report 6158830-4 (Version None)
Quarter: 2009Q2

REPORT INFORMATION
  Report Type: 
  Country: None (occurrence: None)
  Receive Date: 20090417
  Receipt Date: 20090410
  Transmission Date: 20091009
  Serious: Yes (Other)
  Sender: FDA-Public Use
  Company Number: US-ASTRAZENECA-2006UW09188

PATIENT
  Age: 630 Month
  Sex: Female
  Weight: 126.1 kg

DRUGS (7)
  1. SEROQUEL [Suspect]
     Indication: DEPRESSION
     Route: 048
     Dates: start: 20050405, end: 20050623
  2. SEROQUEL [Suspect]
     Indication: POST-TRAUMATIC STRESS DISORDER
     Route: 048
     Dates: start: 20050405, end: 20050623
  3. SEROQUEL [Suspect]
     Indication: PERSONALITY DISORDER
     Route: 048
     Dates: start: 20050405, end: 20050623
  4. ABILIFY [Concomitant]
  5. GEODON [Concomitant]
  6. RISPERDAL [Concomitant]
  7. THORAZINE [Concomitant]

REACTIONS (4)
  - CARDIAC FAILURE [None]
  - GALLBLADDER DISORDER [None]
  - GASTRIC BYPASS [None]
  - TYPE 2 DIABETES MELLITUS [None]
